FAERS Safety Report 6867585-7 (Version None)
Quarter: 2010Q3

REPORT INFORMATION
  Report Type: 
  Country: None (occurrence: None)
  Receive Date: 20100722
  Receipt Date: 20090608
  Transmission Date: 20110219
  Serious: No
  Sender: FDA-Public Use
  Company Number: US-BAUSCH-2009BL002867

PATIENT
  Sex: Female

DRUGS (3)
  1. ADVANCED EYE RELIEF/DRY EYE/REJUVENATION LUBRICANT EYE DROPS [Suspect]
     Indication: DRY EYE
     Route: 047
     Dates: start: 20090501, end: 20090606
  2. RENU REWETTING DROPS [Suspect]
     Indication: CORRECTIVE LENS USER
     Route: 047
     Dates: start: 20090501, end: 20090601
  3. OPCON-A [Suspect]
     Indication: EYE IRRITATION
     Route: 047
     Dates: start: 20090515, end: 20090515

REACTIONS (3)
  - EYE INFLAMMATION [None]
  - EYE IRRITATION [None]
  - OCULAR HYPERAEMIA [None]
